FAERS Safety Report 5836054-5 (Version None)
Quarter: 2008Q3

REPORT INFORMATION
  Report Type: 
  Country: None (occurrence: None)
  Receive Date: 20080805
  Receipt Date: 20080721
  Transmission Date: 20090109
  Serious: Yes (Hospitalization, Other)
  Sender: FDA-Public Use
  Company Number: GB-DEXPHARM-20080791

PATIENT
  Age: 78 Year
  Sex: Female

DRUGS (16)
  1. OMEPRAZOLE [Suspect]
     Indication: DUODENITIS
     Dosage: ^1/1 DAYS^ { 40 MG MILLIGRAM(S) } ORAL
     Route: 048
     Dates: start: 19980101, end: 20070101
  2. ADCAL-D3 [Concomitant]
  3. ASPIRIN [Concomitant]
  4. ATORVASTATIN [Concomitant]
  5. ATROVENT [Concomitant]
  6. BUMETANIDE [Concomitant]
  7. CO-CODAMOL [Concomitant]
  8. FUROSEMIDE [Concomitant]
  9. GABAPENTIN [Concomitant]
  10. NITROGLYCERIN [Concomitant]
  11. HYOSCINE HBR HYT [Concomitant]
  12. LOSARTAN POTASSIUM [Concomitant]
  13. QUININE SULPHATE [Concomitant]
  14. SALMETEROL [Concomitant]
  15. SERETIDE [Concomitant]
  16. SPIRONOLACTONE [Concomitant]

REACTIONS (7)
  - CHRONIC OBSTRUCTIVE PULMONARY DISEASE [None]
  - CONDITION AGGRAVATED [None]
  - DIARRHOEA [None]
  - HYPOCALCAEMIA [None]
  - HYPOKALAEMIA [None]
  - HYPOMAGNESAEMIA [None]
  - VOMITING [None]
